FAERS Safety Report 5196369-3 (Version None)
Quarter: 2006Q4

REPORT INFORMATION
  Report Type: 
  Country: None (occurrence: None)
  Receive Date: 20061222
  Receipt Date: 20061207
  Transmission Date: 20070319
  Serious: Yes (Hospitalization)
  Sender: FDA-Public Use
  Company Number: NALDE-06-0670

PATIENT
  Age: 16 Year
  Sex: Male

DRUGS (4)
  1. ROPIVACAIN (ROPIVACAINE) [Suspect]
     Indication: IMMUNOSUPPRESSION
     Dosage: SEE IMAGE
     Route: 042
  2. ROPIVACAIN (ROPIVACAINE) [Suspect]
     Indication: POSTOPERATIVE ANALGESIA
     Dosage: SEE IMAGE
     Route: 042
  3. PREDNISOLONE [Concomitant]
  4. SUFENTANIL CITRATE [Concomitant]

REACTIONS (6)
  - ANAESTHETIC COMPLICATION [None]
  - BRAIN OEDEMA [None]
  - CEREBROVASCULAR SPASM [None]
  - DRUG TOXICITY [None]
  - ENCEPHALOPATHY [None]
  - POST PROCEDURAL COMPLICATION [None]
